FAERS Safety Report 9422643 (Version 3)
Quarter: 2013Q3

REPORT INFORMATION
  Report Type: Spontaneous
  Country: US (occurrence: US)
  Receive Date: 20130726
  Receipt Date: 20130909
  Transmission Date: 20140515
  Serious: Yes (Death, Other)
  Sender: FDA-Public Use
  Company Number: US-VERTEX PHARMACEUTICALS INC-2013-008242

PATIENT
  Sex: 0

DRUGS (6)
  1. INCIVEK [Suspect]
     Indication: HEPATITIS C
     Dosage: UNK
  2. PEGINTERFERON [Suspect]
     Indication: HEPATITIS C
  3. RIBAVIRIN [Suspect]
     Indication: HEPATITIS C
     Dosage: UNK MG, QD
  4. TACROLIMUS [Concomitant]
     Dosage: UNK MG, QD
  5. TACROLIMUS [Concomitant]
     Dosage: UNK MG, QW
  6. TACROLIMUS [Concomitant]
     Dosage: UNK

REACTIONS (13)
  - Sepsis [Fatal]
  - Pneumonia [Unknown]
  - Acute respiratory distress syndrome [Unknown]
  - Complications of transplanted liver [Unknown]
  - Liver transplant rejection [Unknown]
  - Hepatic cirrhosis [Unknown]
  - Ascites [Unknown]
  - Renal failure [Unknown]
  - Anaemia [Unknown]
  - Infection [Unknown]
  - Dehydration [Unknown]
  - Off label use [Unknown]
  - Drug ineffective [Unknown]
